FAERS Safety Report 6295135-5 (Version None)
Quarter: 2009Q3

REPORT INFORMATION
  Report Type: 
  Country: None (occurrence: None)
  Receive Date: 20090730
  Receipt Date: 20090724
  Transmission Date: 20100115
  Serious: Yes (Other)
  Sender: FDA-Public Use
  Company Number: 2009SP016959

PATIENT
  Age: 65 Year
  Sex: Female

DRUGS (1)
  1. REBETOL [Suspect]
     Indication: HEPATITIS C
     Dosage: 600 MG, QD;
     Dates: end: 20090301

REACTIONS (1)
  - INTERSTITIAL LUNG DISEASE [None]
